FAERS Safety Report 5189956-X (Version None)
Quarter: 2006Q4

REPORT INFORMATION
  Report Type: 
  Country: None (occurrence: None)
  Receive Date: 20061218
  Receipt Date: 20061207
  Transmission Date: 20070319
  Serious: Yes (Hospitalization)
  Sender: FDA-Public Use
  Company Number: 233570

PATIENT
  Age: 67 Year
  Sex: Female

DRUGS (1)
  1. MABTHERA(RITUXIMAB) CONC FOR SOLUTION FOR INFUSION [Suspect]
     Indication: DRUG USE FOR UNKNOWN INDICATION
     Dosage: 1 G, SINGLE
     Dates: start: 20061019, end: 20061019

REACTIONS (3)
  - CONDITION AGGRAVATED [None]
  - ERYSIPELAS [None]
  - PSORIASIS [None]
